FAERS Safety Report 10120920 (Version 1)
Quarter: 2014Q2

REPORT INFORMATION
  Report Type: Spontaneous
  Country: US (occurrence: US)
  Receive Date: 20140425
  Receipt Date: 20140425
  Transmission Date: 20141212
  Serious: No
  Sender: FDA-Public Use
  Company Number: US-ASTRAZENECA-2013SE73077

PATIENT
  Sex: Female

DRUGS (3)
  1. PRILOSEC OTC [Suspect]
     Route: 048
     Dates: start: 20130923, end: 20130925
  2. ANALGESICS [Concomitant]
     Dosage: UNKNOWN
  3. BURSITIS MEDICATION [Concomitant]
     Dosage: UNKNOWN

REACTIONS (4)
  - Abdominal distension [Recovered/Resolved]
  - Chest pain [Recovered/Resolved]
  - Dyspepsia [Recovered/Resolved]
  - Eructation [Recovered/Resolved]
